FAERS Safety Report 4949814-X (Version None)
Quarter: 2006Q1

REPORT INFORMATION
  Report Type: 
  Country: None (occurrence: None)
  Receive Date: 20060315
  Receipt Date: 20060306
  Transmission Date: 20060701
  Serious: Yes (Other)
  Sender: FDA-Public Use
  Company Number: HQWYE818115FEB06

PATIENT
  Age: 83 Year
  Sex: Female
  Weight: 70.82 kg

DRUGS (3)
  1. TYGACIL [Suspect]
     Dates: start: 20060101, end: 20060101
  2. PREMARIN [Suspect]
  3. TAMOXIFEN CITRATE [Concomitant]

REACTIONS (6)
  - ABDOMINAL DISTENSION [None]
  - ABDOMINAL TENDERNESS [None]
  - CONSTIPATION [None]
  - DYSPNOEA [None]
  - HEPATIC CIRRHOSIS [None]
  - NAUSEA [None]
